FAERS Safety Report 5217478-6 (Version None)
Quarter: 2006Q4

REPORT INFORMATION
  Report Type: 
  Country: None (occurrence: None)
  Receive Date: 20061130
  Receipt Date: 20060829
  Transmission Date: 20070319
  Serious: Yes (Hospitalization)
  Sender: FDA-Public Use
  Company Number: US200603000562

PATIENT
  Age: 47 Year
  Sex: Female
  Weight: 98.9 kg

DRUGS (1)
  1. ZYPREXA [Suspect]
     Dosage: EACH EVENING, ORAL
     Route: 048
     Dates: start: 20021101, end: 20050801

REACTIONS (3)
  - DIABETES MELLITUS [None]
  - PANCREATITIS [None]
  - WEIGHT INCREASED [None]
